FAERS Safety Report 7232522-2 (Version None)
Quarter: 2011Q1

REPORT INFORMATION
  Report Type: 
  Country: None (occurrence: None)
  Receive Date: 20110119
  Receipt Date: 20101129
  Transmission Date: 20110831
  Serious: Yes (Hospitalization, Other)
  Sender: FDA-Public Use
  Company Number: US-BAYER-201013557NA

PATIENT
  Sex: Female
  Weight: 88.636 kg

DRUGS (25)
  1. EFFEXOR [Concomitant]
     Indication: DEPRESSION
  2. UNCODEABLE ^UNCLASSIFIABLE^ [Concomitant]
  3. PSEUDOEPHEDRINE HCL [Concomitant]
  4. DEMEROL [Concomitant]
  5. YAZ [Suspect]
     Indication: OVARIAN CYST
     Dosage: UNK
     Dates: start: 20060801, end: 20070101
  6. CYMBALTA [Concomitant]
     Indication: PAIN
     Dates: start: 20070101
  7. ANTIBIOTICS [Concomitant]
  8. MAXALT [Concomitant]
     Dates: start: 20090101
  9. EFFEXOR XR [Concomitant]
  10. RISPERDAL [Concomitant]
     Indication: AFFECTIVE DISORDER
  11. YAZ [Suspect]
     Indication: PREMENSTRUAL SYNDROME
     Dosage: UNK
     Dates: start: 20080701, end: 20090801
  12. CYMBALTA [Concomitant]
  13. FLEXERIL [Concomitant]
     Indication: PAIN
     Dates: start: 20090101, end: 20090101
  14. OXYCODONE HCL [Concomitant]
  15. CYCLOBENZAPRINE [Concomitant]
  16. FLEXERIL [Concomitant]
     Indication: MUSCLE SPASMS
  17. YASMIN [Suspect]
     Indication: PREMENSTRUAL SYNDROME
     Dosage: UNK
     Dates: start: 20080101
  18. VICODIN [Concomitant]
     Indication: MUSCULOSKELETAL PAIN
  19. YASMIN [Suspect]
     Indication: OVARIAN CYST
     Dosage: UNK
     Dates: start: 20030801, end: 20040601
  20. NAPROSYN [Concomitant]
     Indication: PAIN
     Dates: start: 20080101, end: 20090101
  21. EFFEXOR [Concomitant]
     Indication: PAIN
     Dates: start: 20050101
  22. HEART MEDICATION (NOS) [Concomitant]
     Dates: start: 19970101
  23. IBUPROFEN [Concomitant]
  24. GUAIFENESIN [Concomitant]
  25. ATENOLOL [Concomitant]
     Indication: PALPITATIONS

REACTIONS (3)
  - ABDOMINAL PAIN UPPER [None]
  - CHOLECYSTITIS CHRONIC [None]
  - CHOLELITHIASIS [None]
